FAERS Safety Report 8275754-7 (Version None)
Quarter: 2012Q2

REPORT INFORMATION
  Report Type: 
  Country: None (occurrence: None)
  Receive Date: 20120410
  Receipt Date: 20120410
  Transmission Date: 20120825
  Serious: Yes (Hospitalization)
  Sender: FDA-Public Use
  Company Number: None

PATIENT
  Age: 71 Year
  Sex: Male

DRUGS (1)
  1. OXYBUTYNIN [Suspect]
     Indication: POLLAKIURIA
     Dates: start: 20110930, end: 20111006

REACTIONS (9)
  - CONSTIPATION [None]
  - NAUSEA [None]
  - DRY MOUTH [None]
  - ILEUS [None]
  - INFREQUENT BOWEL MOVEMENTS [None]
  - SUPRAPUBIC PAIN [None]
  - URINARY RETENTION [None]
  - ERUCTATION [None]
  - DECREASED APPETITE [None]
